FAERS Safety Report 12297688 (Version 1)
Quarter: 2016Q2

REPORT INFORMATION
  Report Type: Spontaneous
  Country: US (occurrence: US)
  Receive Date: 20160422
  Receipt Date: 20160422
  Transmission Date: 20160815
  Serious: Yes (Other)
  Sender: FDA-Public Use
  Company Number: US-TEVA-652946USA

PATIENT
  Sex: Female

DRUGS (1)
  1. COPAXONE [Suspect]
     Active Substance: GLATIRAMER ACETATE
     Indication: MULTIPLE SCLEROSIS
     Dosage: UNKNOWN FORM STRENGTH

REACTIONS (8)
  - Intentional product use issue [Unknown]
  - Motor dysfunction [Recovered/Resolved]
  - Paraesthesia [Unknown]
  - Fatigue [Recovered/Resolved]
  - Primary progressive multiple sclerosis [Unknown]
  - Injection site reaction [Unknown]
  - Injection site urticaria [Unknown]
  - Dyspnoea [Recovered/Resolved]
